FAERS Safety Report 4594570-0 (Version None)
Quarter: 2005Q1

REPORT INFORMATION
  Report Type: 
  Country: None (occurrence: None)
  Receive Date: 20050301
  Receipt Date: 20040526
  Transmission Date: 20050727
  Serious: No
  Sender: FDA-Public Use
  Company Number: US-GLAXOSMITHKLINE-A0512246A

PATIENT
  Age: 58 Year
  Sex: Female

DRUGS (10)
  1. VALTREX [Suspect]
     Dosage: 500MG THREE TIMES PER DAY
     Route: 048
     Dates: start: 20040525
  2. LAMICTAL [Concomitant]
  3. WELLBUTRIN XL [Concomitant]
  4. PAXIL CR [Concomitant]
  5. STRATTERA [Concomitant]
  6. PROVIGIL [Concomitant]
  7. ULTRAM [Concomitant]
  8. VALIUM [Concomitant]
  9. CALCIUM GLUCONATE [Concomitant]
  10. VITAMINS [Concomitant]

REACTIONS (1)
  - NAUSEA [None]
